FAERS Safety Report 6379847-0 (Version None)
Quarter: 2009Q3

REPORT INFORMATION
  Report Type: 
  Country: None (occurrence: None)
  Receive Date: 20090928
  Receipt Date: 20090916
  Transmission Date: 20100115
  Serious: Yes (Hospitalization, Other)
  Sender: FDA-Public Use
  Company Number: US-ELI_LILLY_AND_COMPANY-US200703004408

PATIENT
  Sex: Male
  Weight: 94.331 kg

DRUGS (2)
  1. ZYPREXA [Suspect]
     Indication: SCHIZOPHRENIA
     Dosage: UNK, UNK
     Dates: start: 19960101, end: 20020101
  2. TRANXENE [Concomitant]

REACTIONS (11)
  - ADVERSE EVENT [None]
  - BLOOD CHOLESTEROL INCREASED [None]
  - BLOOD TRIGLYCERIDES INCREASED [None]
  - ERECTILE DYSFUNCTION [None]
  - FEELING ABNORMAL [None]
  - GAIT DISTURBANCE [None]
  - INCREASED APPETITE [None]
  - MENTAL DISORDER [None]
  - NEUROPATHY PERIPHERAL [None]
  - TOOTH LOSS [None]
  - WEIGHT INCREASED [None]
